FAERS Safety Report 10035982 (Version 1)
Quarter: 2014Q1

REPORT INFORMATION
  Report Type: Spontaneous
  Country: AU (occurrence: AU)
  Receive Date: 20140325
  Receipt Date: 20140325
  Transmission Date: 20141002
  Serious: Yes (Hospitalization)
  Sender: FDA-Public Use
  Company Number: AU-B.I. PHARMACEUTICALS,INC./RIDGEFIELD-2014-BI-11904AU

PATIENT
  Age: 5 Decade
  Sex: Male

DRUGS (1)
  1. MICARDIS [Suspect]
     Indication: PRODUCT USED FOR UNKNOWN INDICATION
     Route: 065

REACTIONS (5)
  - Cerebrovascular accident [Unknown]
  - Dizziness [Unknown]
  - Disorientation [Unknown]
  - Vision blurred [Unknown]
  - Blood pressure abnormal [Unknown]
